FAERS Safety Report 14798601 (Version 1)
Quarter: 2018Q2

REPORT INFORMATION
  Report Type: Spontaneous
  Country: FR (occurrence: FR)
  Receive Date: 20180424
  Receipt Date: 20180424
  Transmission Date: 20180711
  Serious: Yes (Life-Threatening)
  Sender: FDA-Public Use
  Company Number: FR-ASTELLAS-2018US019535

PATIENT
  Age: 79 Year
  Sex: Male

DRUGS (1)
  1. REGADENOSON [Suspect]
     Active Substance: REGADENOSON
     Indication: IMAGING PROCEDURE
     Dosage: 400 ?G (80 ?G/ML), TOTAL DOSE
     Route: 042
     Dates: start: 20180327, end: 20180327

REACTIONS (1)
  - Bronchospasm [Recovered/Resolved]

NARRATIVE: CASE EVENT DATE: 20180327
